FAERS Safety Report 17472060 (Version 1)
Quarter: 2020Q1

REPORT INFORMATION
  Report Type: Spontaneous
  Country: US (occurrence: US)
  Receive Date: 20200228
  Receipt Date: 20200228
  Transmission Date: 20200409
  Serious: Yes (Life-Threatening, Hospitalization, Other)
  Sender: FDA-Public Use
  Company Number: US-ACCORD-173973

PATIENT
  Age: 70 Year
  Sex: Male

DRUGS (1)
  1. CAPECITABINE. [Suspect]
     Active Substance: CAPECITABINE
     Indication: COLON CANCER

REACTIONS (4)
  - Metabolic acidosis [Unknown]
  - Dehydration [Unknown]
  - Mucosal toxicity [Unknown]
  - Diarrhoea [Not Recovered/Not Resolved]
